FAERS Safety Report 8490467-4 (Version None)
Quarter: 2012Q3

REPORT INFORMATION
  Report Type: 
  Country: None (occurrence: None)
  Receive Date: 20120705
  Receipt Date: 20120621
  Transmission Date: 20120928
  Serious: Yes (Hospitalization, Other)
  Sender: FDA-Public Use
  Company Number: GB-BAUSCH-2010BL002926

PATIENT
  Age: 62 Year
  Sex: Male

DRUGS (11)
  1. GLIMEPIRIDE [Concomitant]
     Indication: DIABETES MELLITUS
  2. DEXAMETHASONE SODIUM PHOSPHATE [Suspect]
     Indication: MULTIPLE MYELOMA
     Route: 048
  3. FENTANYL CITRATE [Concomitant]
     Indication: PAIN
     Route: 062
  4. FUROSEMIDE [Concomitant]
     Indication: OEDEMA
  5. PIOGLITAZONE [Concomitant]
     Indication: DIABETES MELLITUS
  6. ACYCLOVIR [Concomitant]
     Indication: ANTIVIRAL PROPHYLAXIS
  7. FLUCONAZOLE [Concomitant]
     Indication: PROPHYLAXIS
  8. LANSOPRAZOLE [Concomitant]
     Indication: PROPHYLAXIS
  9. BORTEZOMIB [Suspect]
     Indication: MULTIPLE MYELOMA
     Route: 042
  10. BORTEZOMIB [Suspect]
     Route: 042
  11. METFORMIN HCL [Concomitant]
     Indication: DIABETES MELLITUS

REACTIONS (5)
  - MYELOMA RECURRENCE [None]
  - PULMONARY EMBOLISM [None]
  - ELECTROLYTE IMBALANCE [None]
  - DIARRHOEA [None]
  - LOWER RESPIRATORY TRACT INFECTION [None]
